FAERS Safety Report 17646643 (Version 1)
Quarter: 2020Q2

REPORT INFORMATION
  Report Type: Spontaneous
  Country: ES (occurrence: ES)
  Receive Date: 20200408
  Receipt Date: 20200408
  Transmission Date: 20200713
  Serious: Yes (Life-Threatening, Hospitalization)
  Sender: FDA-Public Use
  Company Number: ES-B.I. PHARMACEUTICALS,INC./RIDGEFIELD-2020-12-018520

PATIENT
  Age: 50 Year
  Sex: Male

DRUGS (5)
  1. METADONA [METHADONE HYDROCHLORIDE] [Interacting]
     Active Substance: METHADONE HYDROCHLORIDE
     Indication: WITHDRAWAL SYNDROME
     Route: 048
     Dates: start: 20200207, end: 20200302
  2. MIRTAZAPINA [Interacting]
     Active Substance: MIRTAZAPINE
     Indication: PRODUCT USED FOR UNKNOWN INDICATION
     Route: 048
     Dates: start: 20200220, end: 20200302
  3. CATAPRESAN [Suspect]
     Active Substance: CLONIDINE
     Indication: WITHDRAWAL SYNDROME
     Route: 048
     Dates: start: 20200214, end: 20200304
  4. HALOPERIDOL. [Interacting]
     Active Substance: HALOPERIDOL
     Indication: WITHDRAWAL SYNDROME
     Route: 048
     Dates: start: 20200214, end: 20200304
  5. QUETIAPINA [QUETIAPINE] [Interacting]
     Active Substance: QUETIAPINE
     Indication: PRODUCT USED FOR UNKNOWN INDICATION
     Route: 048
     Dates: start: 20200214, end: 20200302

REACTIONS (2)
  - Coma [Recovered/Resolved]
  - Encephalopathy [Recovered/Resolved]

NARRATIVE: CASE EVENT DATE: 20200224
